FAERS Safety Report 4798940-7 (Version None)
Quarter: 2005Q4

REPORT INFORMATION
  Report Type: 
  Country: None (occurrence: None)
  Receive Date: 20051014
  Receipt Date: 20051003
  Transmission Date: 20060501
  Serious: Yes (Hospitalization)
  Sender: FDA-Public Use
  Company Number: GB-GILEAD-2005-0008765

PATIENT
  Sex: Male
  Weight: 64 kg

DRUGS (10)
  1. VIREAD [Suspect]
     Indication: HIV INFECTION
     Route: 048
     Dates: start: 20030307
  2. ATAZANAVIR [Concomitant]
     Route: 048
     Dates: start: 20040319
  3. RITONAVIR [Concomitant]
     Route: 048
     Dates: start: 20040319
  4. ABACAVIR [Concomitant]
     Route: 048
     Dates: start: 20030822
  5. RIFABUTIN [Concomitant]
     Route: 048
     Dates: start: 20040901
  6. ETHAMBUTOL [Concomitant]
     Route: 048
     Dates: start: 20030101
  7. AZITHROMYCIN [Concomitant]
     Route: 048
     Dates: start: 20030501
  8. AMITRIPTYLINE HCL [Concomitant]
     Route: 048
  9. CYCLIZINE [Concomitant]
     Route: 048
  10. PERCIABALINE [Concomitant]
     Route: 048

REACTIONS (2)
  - HYPERCALCAEMIA [None]
  - RENAL IMPAIRMENT [None]
